FAERS Safety Report 12031440 (Version 1)
Quarter: 2016Q1

REPORT INFORMATION
  Report Type: Report from Study
  Country: US (occurrence: US)
  Receive Date: 20160207
  Receipt Date: 20160207
  Transmission Date: 20160526
  Serious: No
  Sender: FDA-Public Use
  Company Number: US-ABBVIE-15K-163-1508230-00

PATIENT
  Age: 56 Year
  Sex: Female

DRUGS (3)
  1. HUMIRA [Suspect]
     Active Substance: ADALIMUMAB
     Indication: RHEUMATOID ARTHRITIS
     Route: 058
     Dates: start: 2014
  2. PREDNISONE. [Concomitant]
     Active Substance: PREDNISONE
     Indication: PRODUCT USED FOR UNKNOWN INDICATION
     Dates: end: 2014
  3. MACRODANTIN [Suspect]
     Active Substance: NITROFURANTOIN
     Indication: HYPERTONIC BLADDER
     Dosage: DAILY
     Route: 065

REACTIONS (9)
  - Bursitis [Unknown]
  - Skin lesion [Unknown]
  - Hypertonic bladder [Not Recovered/Not Resolved]
  - Pruritus [Recovering/Resolving]
  - Bronchitis [Recovered/Resolved]
  - Fungal infection [Unknown]
  - Eczema [Unknown]
  - Ear discomfort [Not Recovered/Not Resolved]
  - Arthralgia [Unknown]

NARRATIVE: CASE EVENT DATE: 2015
